FAERS Safety Report 7027006-0 (Version None)
Quarter: 2010Q4

REPORT INFORMATION
  Report Type: 
  Country: None (occurrence: None)
  Receive Date: 20101004
  Receipt Date: 20100924
  Transmission Date: 20110411
  Serious: Yes (Hospitalization)
  Sender: FDA-Public Use
  Company Number: BR-ASTRAZENECA-2010SE45446

PATIENT
  Age: 47 Year
  Sex: Female
  Weight: 55 kg

DRUGS (5)
  1. ATENOLOL [Suspect]
     Indication: HYPERTENSION
     Route: 048
     Dates: start: 20090101, end: 20100901
  2. ATACAND [Suspect]
     Indication: HYPERTENSION
     Route: 048
     Dates: start: 20100923
  3. ATACAND HCT [Suspect]
     Indication: HYPERTENSION
     Dosage: 16 / 12.5 MG ONCE DAILY
     Route: 048
     Dates: start: 20090101, end: 20090101
  4. PURAN T4 [Concomitant]
     Indication: HYPOTHYROIDISM
     Route: 048
     Dates: start: 20070101
  5. CERAZETTE [Concomitant]
     Indication: VAGINAL HAEMORRHAGE
     Dates: start: 20080101

REACTIONS (3)
  - BACK PAIN [None]
  - BRONCHITIS [None]
  - PNEUMONIA [None]
